FAERS Safety Report 7241687-8 (Version None)
Quarter: 2011Q1

REPORT INFORMATION
  Report Type: 
  Country: None (occurrence: None)
  Receive Date: 20110124
  Receipt Date: 20110114
  Transmission Date: 20110831
  Serious: Yes (Hospitalization)
  Sender: FDA-Public Use
  Company Number: PHHO2011NL01007

PATIENT
  Sex: Male
  Weight: 63 kg

DRUGS (4)
  1. MYCOPHENOLIC ACID [Suspect]
     Indication: STEM CELL TRANSPLANT
     Dosage: 2160 MG
     Route: 048
     Dates: start: 20101201, end: 20110112
  2. SANDIMMUNE [Suspect]
     Indication: STEM CELL TRANSPLANT
     Dosage: 500 MG
     Route: 048
     Dates: start: 20101124
  3. VALACICLOVIR [Suspect]
     Dosage: 500 MG, TID
     Route: 048
     Dates: start: 20101201, end: 20110112
  4. COTRIM [Suspect]
     Dosage: 480 MG, QD
     Route: 048
     Dates: start: 20101201, end: 20110112

REACTIONS (4)
  - SKIN LESION [None]
  - EOSINOPHILIA [None]
  - OESOPHAGEAL CANDIDIASIS [None]
  - PYREXIA [None]
